FAERS Safety Report 11701607 (Version 1)
Quarter: 2015Q4

REPORT INFORMATION
  Report Type: Spontaneous
  Country: US (occurrence: US)
  Receive Date: 20151105
  Receipt Date: 20151105
  Transmission Date: 20160304
  Serious: No
  Sender: FDA-Public Use
  Company Number: US-MALLINCKRODT-T201500043

PATIENT
  Sex: Female
  Weight: 100 kg

DRUGS (4)
  1. TRAMADOL. [Concomitant]
     Active Substance: TRAMADOL
     Dosage: 50 MG, 1 UP TO EVERY 4 HOURS
  2. OXYCODONE AND ACETAMINOPHEN [Concomitant]
     Active Substance: ACETAMINOPHEN\OXYCODONE\OXYCODONE HYDROCHLORIDE
     Dosage: 10/325 1 UP TO EVERY 4 HOURS
  3. FENTANYL TRANSDERMAL SYSTEM [Suspect]
     Active Substance: FENTANYL
     Indication: MUSCULOSKELETAL PAIN
     Dosage: ONCE EVERY 3 DAYS
     Route: 062
     Dates: start: 20141218, end: 20150105
  4. DIAZEPAM. [Concomitant]
     Active Substance: DIAZEPAM
     Dosage: 5 MG, 1 UP TO EVERY 4 HOURS

REACTIONS (5)
  - Disturbance in attention [Not Recovered/Not Resolved]
  - Somnolence [Not Recovered/Not Resolved]
  - Nausea [Not Recovered/Not Resolved]
  - Aphasia [Not Recovered/Not Resolved]
  - Speech disorder [Not Recovered/Not Resolved]
